FAERS Safety Report 23227819 (Version 1)
Quarter: 2023Q4

REPORT INFORMATION
  Report Type: Spontaneous
  Country: US (occurrence: US)
  Receive Date: 20231125
  Receipt Date: 20231125
  Transmission Date: 20240110
  Serious: No
  Sender: FDA-Public Use
  Company Number: US-TEVA-2023-US-2946472

PATIENT
  Age: 42 Year
  Sex: Female

DRUGS (1)
  1. UZEDY [Suspect]
     Active Substance: RISPERIDONE
     Indication: Product used for unknown indication
     Dosage: FORM STRENGTH: 50/0.14 MG/ML
     Route: 065

REACTIONS (4)
  - Head titubation [Unknown]
  - Tremor [Unknown]
  - Diarrhoea [Unknown]
  - Increased appetite [Unknown]
